FAERS Safety Report 23756366 (Version 3)
Quarter: 2025Q1

REPORT INFORMATION
  Report Type: Spontaneous
  Country: US (occurrence: US)
  Receive Date: 20240418
  Receipt Date: 20250212
  Transmission Date: 20250408
  Serious: No
  Sender: SANOFI AVENTIS
  Company Number: US-SA-SAC20240412000009

PATIENT
  Age: 37 Year
  Sex: Female
  Weight: 56.2 kg

DRUGS (11)
  1. CEREZYME [Suspect]
     Active Substance: IMIGLUCERASE
     Indication: Gaucher^s disease
     Dosage: 3600 U, QOW
     Route: 042
     Dates: start: 20230207
  2. CERDELGA [Suspect]
     Active Substance: ELIGLUSTAT
     Route: 065
  3. STERILE WATER [Concomitant]
     Active Substance: WATER
  4. SODIUM CHLORIDE [Concomitant]
     Active Substance: SODIUM CHLORIDE
  5. EPINEPHRINE [Concomitant]
     Active Substance: EPINEPHRINE
  6. MINERALS\OMEGA-3 FATTY ACIDS\VITAMINS [Concomitant]
     Active Substance: MINERALS\OMEGA-3 FATTY ACIDS\VITAMINS
  7. DIPHENHYDRAMINE HYDROCHLORIDE [Concomitant]
     Active Substance: DIPHENHYDRAMINE HYDROCHLORIDE
  8. SODIUM CHLORIDE [Concomitant]
     Active Substance: SODIUM CHLORIDE
  9. LIDOCAINE [Concomitant]
     Active Substance: LIDOCAINE
     Dates: end: 202409
  10. DELSYM [Concomitant]
     Active Substance: DEXTROMETHORPHAN
  11. DIPHENHYDRAMINE [Concomitant]
     Active Substance: DIPHENHYDRAMINE

REACTIONS (8)
  - Bacterial infection [Unknown]
  - Pyrexia [Unknown]
  - Mastitis [Unknown]
  - Pyrexia [Unknown]
  - Anxiety [Unknown]
  - Disturbance in attention [Unknown]
  - Stress [Unknown]
  - Sleep disorder [Unknown]

NARRATIVE: CASE EVENT DATE: 20240401
